FAERS Safety Report 8193295-2 (Version None)
Quarter: 2012Q1

REPORT INFORMATION
  Report Type: 
  Country: None (occurrence: None)
  Receive Date: 20120308
  Receipt Date: 20120222
  Transmission Date: 20120608
  Serious: Yes (Hospitalization)
  Sender: FDA-Public Use
  Company Number: KP-JNJFOC-20120302947

PATIENT
  Sex: Male
  Weight: 67.8 kg

DRUGS (19)
  1. PREDNISOLONE [Concomitant]
     Route: 065
     Dates: start: 20111212, end: 20111215
  2. VELCADE [Concomitant]
     Route: 065
     Dates: start: 20111124, end: 20111201
  3. RANITIDINE [Concomitant]
     Indication: PEPTIC ULCER
     Route: 048
     Dates: start: 20111109, end: 20111115
  4. METOCLOPRAMIDE [Concomitant]
     Route: 048
     Dates: start: 20111108, end: 20111108
  5. MELPHALAN HYDROCHLORIDE [Concomitant]
     Route: 065
     Dates: start: 20111212, end: 20111215
  6. VELCADE [Concomitant]
     Route: 065
     Dates: start: 20111101, end: 20111121
  7. STILLEN [Concomitant]
     Indication: THERAPEUTIC PROCEDURE
     Route: 048
     Dates: start: 20111108, end: 20111115
  8. ACYCLOVIR [Concomitant]
     Indication: ANTIVIRAL PROPHYLAXIS
     Route: 048
     Dates: start: 20111109
  9. PREDNISOLONE [Concomitant]
     Indication: MULTIPLE MYELOMA
     Route: 065
     Dates: start: 20111101, end: 20111104
  10. MELPHALAN HYDROCHLORIDE [Concomitant]
     Indication: MULTIPLE MYELOMA
     Route: 065
     Dates: start: 20111101, end: 20111104
  11. ADALAT [Concomitant]
     Indication: CARDIOVASCULAR DISORDER
     Route: 048
     Dates: start: 20111109
  12. UNKNOWN MEDICATION [Concomitant]
     Indication: ANALGESIC THERAPY
     Route: 048
     Dates: start: 20111108
  13. DICHLOZID [Concomitant]
     Indication: DIURETIC THERAPY
     Route: 048
     Dates: start: 20111109
  14. DURAGESIC-100 [Suspect]
     Indication: ANALGESIC THERAPY
     Route: 062
     Dates: start: 20111108
  15. VELCADE [Concomitant]
     Indication: MULTIPLE MYELOMA
     Route: 065
     Dates: start: 20111212, end: 20120112
  16. UNKNOWN MEDICATION [Concomitant]
     Indication: MEDICAL DIET
     Route: 042
     Dates: start: 20111108
  17. MAGNESIUM OXIDE [Concomitant]
     Indication: ANTACID THERAPY
     Route: 048
     Dates: start: 20111108
  18. OXYCONTIN [Concomitant]
     Indication: ANALGESIC THERAPY
     Route: 048
     Dates: start: 20111108, end: 20111117
  19. PHENIRAMINE [Concomitant]
     Indication: ANTIALLERGIC THERAPY
     Route: 048
     Dates: start: 20111109, end: 20111109

REACTIONS (1)
  - PNEUMONIA [None]
